FAERS Safety Report 19802601 (Version 2)
Quarter: 2021Q4

REPORT INFORMATION
  Report Type: Spontaneous
  Country: GB (occurrence: GB)
  Receive Date: 20210908
  Receipt Date: 20211203
  Transmission Date: 20220303
  Serious: Yes (Other)
  Sender: FDA-Public Use
  Company Number: None

PATIENT
  Sex: Female
  Weight: 49.89 kg

DRUGS (2)
  1. VAGIFEM [Suspect]
     Active Substance: ESTRADIOL
     Indication: Urinary incontinence
     Dosage: EVERY NIGHT FOR 2 WEEKS THEN TWICE WEEKLY
     Route: 067
     Dates: start: 20210820, end: 20210827
  2. LACTULOSE [Concomitant]
     Active Substance: LACTULOSE
     Indication: Ill-defined disorder
     Dosage: UNK
     Route: 065

REACTIONS (2)
  - Abdominal pain upper [Recovering/Resolving]
  - Product use in unapproved indication [Unknown]

NARRATIVE: CASE EVENT DATE: 20210820
